FAERS Safety Report 10641576 (Version 3)
Quarter: 2014Q4

REPORT INFORMATION
  Report Type: Spontaneous
  Country: US (occurrence: US)
  Receive Date: 20141209
  Receipt Date: 20141223
  Transmission Date: 20150529
  Serious: Yes (Hospitalization)
  Sender: FDA-Public Use
  Company Number: US-UNITED THERAPEUTICS-UNT-2014-009035

PATIENT
  Age: 41 Year
  Sex: Male
  Weight: 124.49 kg

DRUGS (7)
  1. TYVASO [Suspect]
     Active Substance: TREPROSTINIL
     Indication: PULMONARY HYPERTENSION
     Dosage: 18-54 MCG, QID
     Dates: start: 20100422
  2. VELETRI [Suspect]
     Active Substance: EPOPROSTENOL
     Indication: COR PULMONALE CHRONIC
     Dosage: UNK
     Dates: start: 2014
  3. TRACLEER [Concomitant]
     Active Substance: BOSENTAN\BOSENTAN MONOHYDRATE
     Indication: PRODUCT USED FOR UNKNOWN INDICATION
  4. VELETRI [Suspect]
     Active Substance: EPOPROSTENOL
     Indication: PULMONARY HYPERTENSION
  5. TYVASO [Suspect]
     Active Substance: TREPROSTINIL
     Indication: COR PULMONALE CHRONIC
     Dosage: 18-54 MCG, QID
     Dates: start: 20100422
  6. TYVASO [Suspect]
     Active Substance: TREPROSTINIL
     Dosage: 18-54 MCG, QID
     Dates: start: 20100426
  7. REVATIO [Concomitant]
     Active Substance: SILDENAFIL CITRATE
     Indication: PRODUCT USED FOR UNKNOWN INDICATION

REACTIONS (14)
  - Dyspnoea [Unknown]
  - Drug dose omission [Unknown]
  - Hot flush [Unknown]
  - Drug intolerance [Unknown]
  - Blood test abnormal [Unknown]
  - Fatigue [Unknown]
  - Pulmonary arterial hypertension [Unknown]
  - Pain in jaw [Unknown]
  - Oedema peripheral [Unknown]
  - Cough [Unknown]
  - Blood potassium decreased [Unknown]
  - Cardiac failure chronic [None]
  - Headache [Unknown]
  - Dehydration [Unknown]

NARRATIVE: CASE EVENT DATE: 2014
